FAERS Safety Report 25001547 (Version 3)
Quarter: 2025Q1

REPORT INFORMATION
  Report Type: Spontaneous
  Country: RU (occurrence: RU)
  Receive Date: 20250223
  Receipt Date: 20250322
  Transmission Date: 20250409
  Serious: Yes (Death, Hospitalization)
  Sender: JOHNSON AND JOHNSON
  Company Number: RU-JNJFOC-20250250722

PATIENT
  Age: 43 Year
  Sex: Female
  Weight: 71 kg

DRUGS (11)
  1. UPTRAVI [Suspect]
     Active Substance: SELEXIPAG
     Indication: Pulmonary hypertension
     Route: 048
     Dates: start: 20240722
  2. CEFEPIME [Concomitant]
     Active Substance: CEFEPIME HYDROCHLORIDE
  3. LEVOFLOXACIN [Concomitant]
     Active Substance: LEVOFLOXACIN
  4. APIXABAN [Concomitant]
     Active Substance: APIXABAN
  5. SPIRONOLACTONE [Concomitant]
     Active Substance: SPIRONOLACTONE
  6. TORSEMIDE [Concomitant]
     Active Substance: TORSEMIDE
  7. GLICLAZIDE [Concomitant]
     Active Substance: GLICLAZIDE
  8. METFORMIN [Concomitant]
     Active Substance: METFORMIN HYDROCHLORIDE
  9. EMPAGLIFLOZIN [Concomitant]
     Active Substance: EMPAGLIFLOZIN
  10. RIOCIGUAT [Concomitant]
     Active Substance: RIOCIGUAT
  11. MACITENTAN [Concomitant]
     Active Substance: MACITENTAN

REACTIONS (2)
  - Respiratory tract infection viral [Fatal]
  - Off label use [Unknown]
